FAERS Safety Report 22122014 (Version 1)
Quarter: 2023Q1

REPORT INFORMATION
  Report Type: Spontaneous
  Country: CA (occurrence: CA)
  Receive Date: 20230321
  Receipt Date: 20230321
  Transmission Date: 20230418
  Serious: Yes (Other)
  Sender: FDA-Public Use
  Company Number: None

PATIENT
  Sex: Female
  Weight: 66 kg

DRUGS (3)
  1. ESCITALOPRAM OXALATE [Suspect]
     Active Substance: ESCITALOPRAM OXALATE
     Indication: Depression
     Dosage: 5 MG, QD
     Route: 048
  2. ESCITALOPRAM OXALATE [Suspect]
     Active Substance: ESCITALOPRAM OXALATE
     Indication: Anxiety
  3. BUPROPION HYDROCHLORIDE XL [Concomitant]
     Active Substance: BUPROPION HYDROCHLORIDE
     Indication: Product used for unknown indication
     Dosage: UNK

REACTIONS (10)
  - Burning sensation [Unknown]
  - Muscle spasms [Unknown]
  - Decreased appetite [Unknown]
  - Headache [Unknown]
  - Insomnia [Unknown]
  - Nausea [Unknown]
  - Panic attack [Unknown]
  - Paraesthesia [Unknown]
  - Tremor [Unknown]
  - Vomiting [Unknown]
